FAERS Safety Report 7061508-6 (Version None)
Quarter: 2010Q4

REPORT INFORMATION
  Report Type: 
  Country: None (occurrence: None)
  Receive Date: 20101026
  Receipt Date: 20101020
  Transmission Date: 20110411
  Serious: Yes (Other)
  Sender: FDA-Public Use
  Company Number: BR-PFIZER INC-2010133881

PATIENT
  Sex: Female
  Weight: 60 kg

DRUGS (3)
  1. CHAMPIX [Suspect]
     Indication: TOBACCO USER
     Dosage: UNK
     Route: 048
  2. ATENOLOL [Concomitant]
     Indication: BLOOD PRESSURE INCREASED
     Dosage: 25 MG, 1X/DAY
     Dates: start: 20090101
  3. ESTRADIOL [Concomitant]
     Indication: MENOPAUSE
     Dosage: 1MG OF ESTRADIOL AND 2MG OF DROSPIRENONE
     Dates: start: 20090101

REACTIONS (1)
  - BLOOD PRESSURE DECREASED [None]
